FAERS Safety Report 13735345 (Version 1)
Quarter: 2017Q3

REPORT INFORMATION
  Report Type: Spontaneous
  Country: GB (occurrence: GB)
  Receive Date: 20170710
  Receipt Date: 20170710
  Transmission Date: 20171127
  Serious: Yes (Hospitalization)
  Sender: FDA-Public Use
  Company Number: PHFR2011GB02625

PATIENT
  Age: 50 Year
  Sex: Female

DRUGS (4)
  1. METHYSERGIDE MALEATE [Suspect]
     Active Substance: METHYSERGIDE MALEATE
     Indication: MIGRAINE
     Dosage: UNK
     Dates: start: 20100501, end: 20100901
  2. METOPROLOL. [Concomitant]
     Active Substance: METOPROLOL
  3. SUMATRIPTAN. [Concomitant]
     Active Substance: SUMATRIPTAN
  4. FOLIC ACID. [Concomitant]
     Active Substance: FOLIC ACID

REACTIONS (3)
  - Acute kidney injury [Not Recovered/Not Resolved]
  - Retroperitoneal fibrosis [Not Recovered/Not Resolved]
  - Urinary tract obstruction [Not Recovered/Not Resolved]
